FAERS Safety Report 6854987-8 (Version None)
Quarter: 2010Q3

REPORT INFORMATION
  Report Type: 
  Country: None (occurrence: None)
  Receive Date: 20100717
  Receipt Date: 20080513
  Transmission Date: 20110219
  Serious: Yes (Other)
  Sender: FDA-Public Use
  Company Number: US-PFIZER INC-2007101221

PATIENT
  Sex: Female
  Weight: 56.363 kg

DRUGS (1)
  1. CHANTIX [Suspect]
     Indication: SMOKING CESSATION THERAPY
     Route: 048
     Dates: start: 20071124, end: 20080110

REACTIONS (5)
  - BLINDNESS TRANSIENT [None]
  - DYSPNOEA [None]
  - PARAESTHESIA [None]
  - SENSORY DISTURBANCE [None]
  - VISUAL IMPAIRMENT [None]
